FAERS Safety Report 8500866-X (Version None)
Quarter: 2012Q3

REPORT INFORMATION
  Report Type: 
  Country: None (occurrence: None)
  Receive Date: 20120710
  Receipt Date: 20120627
  Transmission Date: 20120928
  Serious: No
  Sender: FDA-Public Use
  Company Number: US-ASTRAZENECA-2010SE51364

PATIENT
  Age: 50 Year
  Sex: Female

DRUGS (3)
  1. SYMBICORT [Suspect]
     Dosage: 160/4.5 MCG - PRESCRIBED DOSE
     Route: 055
  2. NEXIUM [Suspect]
     Route: 048
  3. SYMBICORT [Suspect]
     Dosage: 80/4.5 MCG - TAKEN DOSE
     Route: 055

REACTIONS (6)
  - DYSPNOEA [None]
  - ASTHMA [None]
  - RESPIRATORY DISORDER [None]
  - DRUG DOSE OMISSION [None]
  - DRUG DISPENSING ERROR [None]
  - WHEEZING [None]
